FAERS Safety Report 24181944 (Version 1)
Quarter: 2024Q3

REPORT INFORMATION
  Report Type: Spontaneous
  Country: US (occurrence: US)
  Receive Date: 20240807
  Receipt Date: 20240807
  Transmission Date: 20241016
  Serious: No
  Sender: CHIESI
  Company Number: US-CHIESI-2024CHF00627

PATIENT

DRUGS (1)
  1. KENGREAL [Suspect]
     Active Substance: CANGRELOR
     Indication: Percutaneous coronary intervention
     Dosage: UNK
     Route: 042

REACTIONS (1)
  - Contusion [Unknown]
